FAERS Safety Report 21648462 (Version 1)
Quarter: 2022Q4

REPORT INFORMATION
  Report Type: Report from Study
  Country: US (occurrence: US)
  Receive Date: 20221128
  Receipt Date: 20221128
  Transmission Date: 20230112
  Serious: No
  Sender: FDA-Public Use
  Company Number: US-ABBVIE-22K-163-4426557-00

PATIENT
  Age: 63 Year
  Sex: Male

DRUGS (6)
  1. RINVOQ [Suspect]
     Active Substance: UPADACITINIB
     Indication: Rheumatoid arthritis
     Route: 048
     Dates: start: 202111
  2. RINVOQ [Suspect]
     Active Substance: UPADACITINIB
     Indication: Rheumatoid arthritis
     Route: 048
     Dates: start: 20211220, end: 20220819
  3. RINVOQ [Suspect]
     Active Substance: UPADACITINIB
     Indication: Rheumatoid arthritis
     Route: 048
  4. Moderna [Concomitant]
     Indication: COVID-19 immunisation
     Dosage: 1 IN 1 ONES
     Route: 030
     Dates: start: 202103, end: 202103
  5. Moderna [Concomitant]
     Indication: COVID-19 immunisation
     Dosage: 1 IN 1 ONES
     Route: 030
     Dates: start: 202104, end: 202104
  6. Moderna [Concomitant]
     Indication: COVID-19 immunisation
     Dosage: 1 IN 1 ONES
     Route: 030
     Dates: start: 202203, end: 202203

REACTIONS (3)
  - Bronchitis [Recovered/Resolved]
  - COVID-19 [Recovered/Resolved]
  - Pneumonia [Unknown]

NARRATIVE: CASE EVENT DATE: 20220901
